FAERS Safety Report 8609129-5 (Version None)
Quarter: 2012Q3

REPORT INFORMATION
  Report Type: 
  Country: None (occurrence: None)
  Receive Date: 20120821
  Receipt Date: 20120811
  Transmission Date: 20120928
  Serious: Yes (Hospitalization)
  Sender: FDA-Public Use
  Company Number: US-CELGENEUS-163-21880-12041716

PATIENT
  Sex: Male
  Weight: 131.66 kg

DRUGS (30)
  1. CRESTOR [Concomitant]
     Dosage: 40 MILLIGRAM
     Route: 048
  2. TUSSIONEX SR [Concomitant]
     Indication: COUGH
     Dosage: 10-8MG/5ML
     Route: 048
  3. VITAMIN B COMPLEX CAP [Concomitant]
     Dosage: 1 CAPSULE
     Route: 048
  4. MULTI-VITAMINS [Concomitant]
     Dosage: 1 TABLET
     Route: 048
  5. REVLIMID [Suspect]
     Dosage: 25 MILLIGRAM
     Route: 048
     Dates: start: 20110701
  6. HYDROCHLOROTHIAZIDE [Concomitant]
     Dosage: 25 MILLIGRAM
     Route: 065
  7. CIALIS [Concomitant]
     Dosage: 10 MILLIGRAM
     Route: 048
  8. DIOVAN HCT [Concomitant]
     Dosage: 80-12.5MG
     Route: 048
  9. ASPIRIN [Concomitant]
     Dosage: 81 MILLIGRAM
     Route: 048
  10. FISH OIL CONCENTRATE [Concomitant]
     Dosage: 1000 MILLIGRAM
     Route: 048
  11. NORCO [Concomitant]
     Indication: PAIN
     Dosage: 10-325MG
     Route: 048
  12. ZOFRAN [Concomitant]
     Dosage: 8 MILLIGRAM
     Route: 048
  13. LIPITOR [Concomitant]
     Dosage: 80 MILLIGRAM
     Route: 048
  14. IBUPROFEN [Concomitant]
     Dosage: 160 MILLIGRAM
     Route: 048
  15. PREDNISONE [Concomitant]
     Dosage: TAPER
     Route: 048
  16. LOSARTAN POTASSIUM [Concomitant]
     Dosage: 50 MILLIGRAM
     Route: 065
  17. CRANBERRY JUICE [Concomitant]
     Route: 065
  18. PREDNISONE [Concomitant]
     Dosage: TAPER
     Route: 048
  19. REVLIMID [Suspect]
     Indication: MULTIPLE MYELOMA
     Dosage: 25 MILLIGRAM
     Route: 048
     Dates: start: 20120410
  20. SOMA [Concomitant]
     Dosage: 1400 MILLIGRAM
     Route: 048
  21. GLUCOSAMINE CHONDROITIN [Concomitant]
     Dosage: 500-400MG
     Route: 048
  22. TRAMADOL HCL [Concomitant]
     Dosage: 50 MILLIGRAM
     Route: 048
  23. DEXAMETHASONE [Concomitant]
     Route: 065
  24. AMBIEN [Concomitant]
     Indication: SLEEP DISORDER
     Dosage: 10 MILLIGRAM
     Route: 048
  25. VALIUM [Concomitant]
     Indication: ANXIETY
     Dosage: 5 MILLIGRAM
     Route: 048
  26. CALCITONIN SALMON [Concomitant]
     Route: 065
  27. REVLIMID [Suspect]
     Dosage: 10 MILLIGRAM
     Route: 048
     Dates: start: 20120501
  28. TESSALON [Concomitant]
     Dosage: 300 MILLIGRAM
     Route: 048
  29. VALTREX [Concomitant]
     Route: 065
  30. FAMOTIDINE [Concomitant]
     Route: 065

REACTIONS (3)
  - TOXICITY TO VARIOUS AGENTS [None]
  - ERYTHEMA MULTIFORME [None]
  - MALAISE [None]
